FAERS Safety Report 21040015 (Version 2)
Quarter: 2022Q3

REPORT INFORMATION
  Report Type: Spontaneous
  Country: GB (occurrence: GB)
  Receive Date: 20220704
  Receipt Date: 20220810
  Transmission Date: 20221027
  Serious: Yes (Death, Other)
  Sender: FDA-Public Use
  Company Number: GB-BAXTER-2022BAX013432

PATIENT
  Sex: Female
  Weight: 4.7 kg

DRUGS (12)
  1. ADENOSINE [Suspect]
     Active Substance: ADENOSINE
     Indication: Supraventricular tachycardia
     Dosage: 700 UG (150 MCG/KG), FOCUS INJECTION SITE INTO TIBIA (FIRST DOSE)
     Dates: start: 20200711, end: 20200711
  2. ADENOSINE [Suspect]
     Active Substance: ADENOSINE
     Dosage: 940 UG (200 MCG/KG) (SECOND DOSE)
     Dates: start: 20200711, end: 20200711
  3. ADENOSINE [Suspect]
     Active Substance: ADENOSINE
     Dosage: 1400 UG (300 MCG/KG) (THIRD DOSE)
     Dates: start: 20200711, end: 20200711
  4. DEXTROSE [Suspect]
     Active Substance: DEXTROSE
     Dosage: 10 %
     Route: 040
     Dates: start: 20200711, end: 20200711
  5. DEXTROSE [Suspect]
     Active Substance: DEXTROSE
     Dosage: 10 %
     Route: 040
     Dates: start: 20200711, end: 20200711
  6. DEXTROSE [Suspect]
     Active Substance: DEXTROSE
     Dosage: UNK
     Route: 040
     Dates: start: 20200711, end: 20200711
  7. DEXTROSE [Suspect]
     Active Substance: DEXTROSE
     Dosage: UNK
     Dates: start: 20200711, end: 20200711
  8. SODIUM CHLORIDE [Suspect]
     Active Substance: SODIUM CHLORIDE
     Dosage: 10MLS SALINE FLUSH, THIS WAS THEN FOLLOWED BY 20MLS/KG 0.9% SODIUM CHLORIDE GIVEN AS FLUID BOLUS
     Route: 040
     Dates: start: 20200711, end: 20200711
  9. AMIODARONE [Suspect]
     Active Substance: AMIODARONE
     Indication: Ventricular fibrillation
     Dosage: UNK
     Route: 065
     Dates: start: 20200711, end: 20200711
  10. AMOXICILLIN [Suspect]
     Active Substance: AMOXICILLIN
     Indication: Sepsis
     Dosage: 141 MG (10 ML SYRINGE)
     Route: 065
     Dates: start: 20200711, end: 20200711
  11. CEFOTAXIME [Suspect]
     Active Substance: CEFOTAXIME SODIUM
     Indication: Sepsis
     Dosage: 235 MG (10 ML SYRINGE)
     Route: 065
     Dates: start: 20200711, end: 20200711
  12. SODIUM BICARBONATE [Suspect]
     Active Substance: SODIUM BICARBONATE
     Dosage: UNK
     Route: 065
     Dates: start: 20200711, end: 20200711

REACTIONS (3)
  - Overdose [Fatal]
  - Cardiac arrest [Fatal]
  - Product administration error [Unknown]

NARRATIVE: CASE EVENT DATE: 20200711
